FAERS Safety Report 6454325-9 (Version None)
Quarter: 2009Q4

REPORT INFORMATION
  Report Type: 
  Country: None (occurrence: None)
  Receive Date: 20091124
  Receipt Date: 20091118
  Transmission Date: 20100525
  Serious: Yes (Hospitalization)
  Sender: FDA-Public Use
  Company Number: NO-B.I. PHARMACEUTICALS,INC./RIDGEFIELD-2009-SW-00291NO

PATIENT
  Sex: Male

DRUGS (1)
  1. ASPIRIN AND DIPYRIDAMOLE [Suspect]
     Indication: CEREBRAL INFARCTION
     Dosage: 2 RT
     Route: 048
     Dates: start: 20090601, end: 20091101

REACTIONS (3)
  - CEREBRAL HAEMORRHAGE [None]
  - VISUAL ACUITY REDUCED [None]
  - VISUAL FIELD DEFECT [None]
